FAERS Safety Report 9311384 (Version 2)
Quarter: 2013Q3

REPORT INFORMATION
  Report Type: Spontaneous
  Country: IT (occurrence: IT)
  Receive Date: 20130528
  Receipt Date: 20130806
  Transmission Date: 20140515
  Serious: Yes (Hospitalization, Other)
  Sender: FDA-Public Use
  Company Number: IT-PFIZER INC-2013161690

PATIENT
  Age: 43 Year
  Sex: Female

DRUGS (4)
  1. TAVOR [Suspect]
     Dosage: 50 MG, TOTAL DOSAGE
     Route: 048
     Dates: start: 20130504, end: 20130504
  2. XANAX [Suspect]
     Dosage: 40 MG, TOTAL DOSAGE
     Route: 048
     Dates: start: 20130504, end: 20130504
  3. STILNOX [Suspect]
     Dosage: 100 MG, TOTAL DOSAGE
     Route: 048
     Dates: start: 20130504, end: 20130504
  4. MINIAS [Suspect]
     Dosage: 10 ML, TOTAL DOSAGE
     Route: 048
     Dates: start: 20130504, end: 20130504

REACTIONS (3)
  - Overdose [Unknown]
  - Intentional self-injury [Recovered/Resolved]
  - Sopor [Recovered/Resolved]
